FAERS Safety Report 15566119 (Version 1)
Quarter: 2018Q4

REPORT INFORMATION
  Report Type: Report from Study
  Country: US (occurrence: US)
  Receive Date: 20181030
  Receipt Date: 20181030
  Transmission Date: 20190205
  Serious: Yes (Hospitalization, Other)
  Sender: FDA-Public Use
  Company Number: US-SA-2018SA295517

PATIENT
  Age: 56 Year
  Sex: Male

DRUGS (1)
  1. INSULIN GLARGINE [Suspect]
     Active Substance: INSULIN GLARGINE
     Indication: TYPE 2 DIABETES MELLITUS
     Dosage: 10 UNITS IN THE MORNING AND 40 UNITS AT NIGHT
     Route: 058

REACTIONS (2)
  - Central nervous system infection [Recovered/Resolved]
  - Bacterial infection [Recovered/Resolved]
